FAERS Safety Report 11161041 (Version 1)
Quarter: 2015Q2

REPORT INFORMATION
  Report Type: Spontaneous
  Country: US (occurrence: US)
  Receive Date: 20150604
  Receipt Date: 20150604
  Transmission Date: 20150821
  Serious: No
  Sender: FDA-Public Use
  Company Number: US-SA-2014SA076270

PATIENT
  Sex: Female
  Weight: 50.8 kg

DRUGS (3)
  1. NOVOLOG [Suspect]
     Active Substance: INSULIN ASPART
     Indication: PRODUCT USED FOR UNKNOWN INDICATION
     Route: 065
  2. LANTUS SOLOSTAR [Suspect]
     Active Substance: INSULIN GLARGINE
     Indication: LATENT AUTOIMMUNE DIABETES IN ADULTS
     Dosage: DOSE:9 UNIT(S)
     Route: 058
     Dates: start: 2010
  3. HUMALOG [Concomitant]
     Active Substance: INSULIN LISPRO
     Dosage: 75/25 AT DINNER

REACTIONS (4)
  - Injection site discolouration [Unknown]
  - Drug effect decreased [Unknown]
  - Hypoglycaemia [Unknown]
  - Hyperglycaemia [Unknown]
